FAERS Safety Report 5209680-4 (Version None)
Quarter: 2007Q1

REPORT INFORMATION
  Report Type: 
  Country: None (occurrence: None)
  Receive Date: 20070116
  Receipt Date: 20061227
  Transmission Date: 20070707
  Serious: Yes (Hospitalization, Other)
  Sender: FDA-Public Use
  Company Number: US-PFIZER INC-2006124532

PATIENT
  Sex: Female
  Weight: 71.2 kg

DRUGS (1)
  1. BEXTRA [Suspect]
     Route: 048
     Dates: start: 20020608, end: 20020613

REACTIONS (2)
  - DIABETES MELLITUS [None]
  - STEVENS-JOHNSON SYNDROME [None]
